FAERS Safety Report 23641558 (Version 2)
Quarter: 2024Q1

REPORT INFORMATION
  Report Type: Other
  Country: PK (occurrence: None)
  Receive Date: 20240318
  Receipt Date: 20240320
  Transmission Date: 20240410
  Serious: Yes (Death)
  Sender: FDA-Public Use
  Company Number: PK-ROCHE-3526996

PATIENT
  Age: 55 Year
  Sex: Female

DRUGS (2)
  1. HERCEPTIN [Suspect]
     Active Substance: TRASTUZUMAB
     Indication: Breast cancer
     Route: 058
     Dates: start: 20231124, end: 20231215
  2. PERJETA [Suspect]
     Active Substance: PERTUZUMAB
     Indication: Breast cancer
     Route: 042
     Dates: start: 20231124, end: 20231215

REACTIONS (1)
  - Anaemia [Fatal]
